FAERS Safety Report 23539740 (Version 1)
Quarter: 2024Q1

REPORT INFORMATION
  Report Type: Report from Study
  Country: PE (occurrence: PE)
  Receive Date: 20240219
  Receipt Date: 20240219
  Transmission Date: 20240410
  Serious: Yes (Death, Other)
  Sender: FDA-Public Use
  Company Number: PE-AstraZeneca-2024A039521

PATIENT
  Age: 206 Day
  Sex: Female

DRUGS (1)
  1. SYNAGIS [Suspect]
     Active Substance: PALIVIZUMAB
     Indication: Antiviral prophylaxis
     Dosage: MONTHLY
     Route: 030
     Dates: start: 20240115

REACTIONS (2)
  - Death [Fatal]
  - Malaise [Fatal]

NARRATIVE: CASE EVENT DATE: 20240124
